FAERS Safety Report 5493134-4 (Version None)
Quarter: 2007Q4

REPORT INFORMATION
  Report Type: 
  Country: None (occurrence: None)
  Receive Date: 20071019
  Receipt Date: 20071008
  Transmission Date: 20080405
  Serious: Yes (Other)
  Sender: FDA-Public Use
  Company Number: GXKR2007GB08667

PATIENT
  Age: 22 Year
  Sex: Male
  Weight: 27.2158 kg

DRUGS (3)
  1. LORATADINE [Suspect]
     Indication: HYPERSENSITIVITY
     Dosage: 10 MG, QD, ORAL
     Route: 048
     Dates: start: 20070911, end: 20070911
  2. VITAMIN B COMPLEX CAP [Suspect]
     Indication: PAIN
     Dosage: ORAL
     Route: 048
     Dates: start: 20070911, end: 20070911
  3. CELECOXIB [Concomitant]

REACTIONS (2)
  - EXTRASYSTOLES [None]
  - PALPITATIONS [None]
